FAERS Safety Report 11385401 (Version 1)
Quarter: 2015Q3

REPORT INFORMATION
  Report Type: Spontaneous
  Country: US (occurrence: US)
  Receive Date: 20150815
  Receipt Date: 20150815
  Transmission Date: 20151125
  Serious: No
  Sender: FDA-Public Use
  Company Number: US-B.I. PHARMACEUTICALS,INC./RIDGEFIELD-2015-BI-42027BP

PATIENT
  Age: 48 Year
  Sex: Female
  Weight: 61 kg

DRUGS (1)
  1. ZANTAC MAXIMUM STRENGTH 150 COOL MINT [Suspect]
     Active Substance: RANITIDINE HYDROCHLORIDE
     Indication: GASTRITIS
     Route: 048
     Dates: start: 20150803

REACTIONS (2)
  - Off label use [Unknown]
  - Drug ineffective [Not Recovered/Not Resolved]

NARRATIVE: CASE EVENT DATE: 20150803
